FAERS Safety Report 4967579-2 (Version None)
Quarter: 2006Q2

REPORT INFORMATION
  Report Type: 
  Country: None (occurrence: None)
  Receive Date: 20060404
  Receipt Date: 20060321
  Transmission Date: 20061013
  Serious: Yes (Other)
  Sender: FDA-Public Use
  Company Number: GXKR2006IT01693

PATIENT
  Age: 29 Year
  Sex: Male
  Weight: 70 kg

DRUGS (5)
  1. CICLOSPORIN (NGX) (CICLOSPORIN) [Suspect]
     Indication: PEMPHIGUS
     Dosage: SEE IMAGE
     Route: 048
  2. CICLOSPORIN (NGX) (CICLOSPORIN) [Suspect]
     Indication: PEMPHIGUS
     Dosage: SEE IMAGE
     Route: 048
  3. LAMIVUDINE [Suspect]
     Indication: HIV INFECTION
     Dosage: 300 MG
  4. TENOFOVIR [Suspect]
     Indication: HIV INFECTION
     Dosage: 300 MG
  5. LOPINAVIR W/RITONAVIR (LOPINAVIR, RITONAVIR) [Suspect]
     Indication: HIV INFECTION
     Dosage: 399.9MG + 99.9MG, BID, ORAL
     Route: 048

REACTIONS (8)
  - ABDOMINAL DISCOMFORT [None]
  - BLOOD CREATININE INCREASED [None]
  - BLOOD UREA INCREASED [None]
  - DRUG INTERACTION [None]
  - DRUG LEVEL INCREASED [None]
  - FATIGUE [None]
  - HEADACHE [None]
  - RENAL IMPAIRMENT [None]
